FAERS Safety Report 4356836-9 (Version None)
Quarter: 2004Q2

REPORT INFORMATION
  Report Type: 
  Country: None (occurrence: None)
  Receive Date: 20040507
  Receipt Date: 20040420
  Transmission Date: 20050107
  Serious: Yes (Hospitalization)
  Sender: FDA-Public Use
  Company Number: FR_040403972

PATIENT
  Age: 41 Year
  Sex: Male

DRUGS (2)
  1. HUMULIN N [Suspect]
     Indication: DIABETES MELLITUS
     Dosage: 58 IU DAY
     Dates: end: 20000303
  2. LAMISIL (TERBINAFINE HYDROCHLORIDE) [Concomitant]

REACTIONS (1)
  - NEUTROPENIA [None]
